FAERS Safety Report 7556704-5 (Version None)
Quarter: 2011Q2

REPORT INFORMATION
  Report Type: 
  Country: None (occurrence: None)
  Receive Date: 20110620
  Receipt Date: 20110615
  Transmission Date: 20111010
  Serious: Yes (Hospitalization, Other)
  Sender: FDA-Public Use
  Company Number: US-PFIZER INC-2011131946

PATIENT
  Sex: Male
  Weight: 98.413 kg

DRUGS (7)
  1. LIPITOR [Suspect]
     Dosage: 10 MG, DAILY
     Route: 048
     Dates: start: 20110601
  2. CARVEDILOL [Concomitant]
     Indication: BLOOD PRESSURE ABNORMAL
     Dosage: 31.125 MG, 2X/DAY
  3. OMEPRAZOLE [Concomitant]
     Indication: DYSPEPSIA
     Dosage: 20 MG, DAILY
  4. LISINOPRIL [Concomitant]
     Indication: BLOOD PRESSURE ABNORMAL
     Dosage: 40 MG, 2X/DAY
  5. METFORMIN [Concomitant]
     Indication: DIABETES MELLITUS
     Dosage: 1000 MG, 2X/DAY
  6. ASPIRIN [Concomitant]
     Dosage: 81 MG, DAILY
     Route: 048
  7. LIPITOR [Suspect]
     Indication: BLOOD CHOLESTEROL INCREASED
     Dosage: 40 MG, DAILY
     Route: 048

REACTIONS (7)
  - VASCULAR OCCLUSION [None]
  - MYALGIA [None]
  - BLOOD GLUCOSE INCREASED [None]
  - MUSCULOSKELETAL PAIN [None]
  - CHEST PAIN [None]
  - ASTHENIA [None]
  - BLOOD PRESSURE INCREASED [None]
